FAERS Safety Report 13790212 (Version 1)
Quarter: 2017Q3

REPORT INFORMATION
  Report Type: Spontaneous
  Country: DE (occurrence: DE)
  Receive Date: 20170725
  Receipt Date: 20170725
  Transmission Date: 20171127
  Serious: Yes (Life-Threatening, Hospitalization)
  Sender: FDA-Public Use
  Company Number: DE-ADIENNEP-2017AD000233

PATIENT
  Age: 1 Year
  Sex: Male

DRUGS (6)
  1. TREOSULFAN [Suspect]
     Active Substance: TREOSULFAN
     Indication: BONE MARROW CONDITIONING REGIMEN
  2. METHOTREXATE. [Suspect]
     Active Substance: METHOTREXATE
     Indication: PROPHYLAXIS AGAINST GRAFT VERSUS HOST DISEASE
  3. FLUDARABINE [Suspect]
     Active Substance: FLUDARABINE PHOSPHATE
     Indication: BONE MARROW CONDITIONING REGIMEN
  4. CYCLOSPORINE. [Suspect]
     Active Substance: CYCLOSPORINE
     Indication: PROPHYLAXIS AGAINST GRAFT VERSUS HOST DISEASE
  5. THIOTEPA. [Suspect]
     Active Substance: THIOTEPA
     Indication: BONE MARROW CONDITIONING REGIMEN
  6. ANTITHYMOCYTE IMMUNOGLOBULIN [Suspect]
     Active Substance: THYMOCYTE IMMUNE GLOBULIN NOS
     Indication: PROPHYLAXIS AGAINST GRAFT VERSUS HOST DISEASE

REACTIONS (14)
  - Skin toxicity [Recovered/Resolved]
  - Pyrexia [Recovered/Resolved]
  - Adenovirus test positive [Recovered/Resolved]
  - Influenza virus test positive [Recovered/Resolved]
  - Coronavirus test positive [Recovered/Resolved]
  - Metabolic acidosis [Recovered/Resolved]
  - Nausea [Recovered/Resolved]
  - Vomiting [Recovered/Resolved]
  - Diarrhoea [Recovered/Resolved]
  - Mucosal toxicity [Recovered/Resolved]
  - Respiratory syncytial virus infection [Recovered/Resolved]
  - Renal function test abnormal [Recovered/Resolved]
  - Bronchitis [Recovered/Resolved]
  - Rotavirus test positive [Recovered/Resolved]
